FAERS Safety Report 5901313-4 (Version None)
Quarter: 2008Q3

REPORT INFORMATION
  Report Type: 
  Country: None (occurrence: None)
  Receive Date: 20080929
  Receipt Date: 20080917
  Transmission Date: 20090109
  Serious: Yes (Death, Hospitalization)
  Sender: FDA-Public Use
  Company Number: FR-ELI_LILLY_AND_COMPANY-FR200809000445

PATIENT
  Age: 79 Year
  Sex: Female
  Weight: 46 kg

DRUGS (5)
  1. FORTEO [Suspect]
     Indication: OSTEOPOROSIS
     Dosage: 20 UG, DAILY (1/D)
     Route: 058
     Dates: start: 20070529
  2. IPERTEN [Concomitant]
     Dosage: UNK, UNKNOWN
     Route: 065
  3. HYPERIUM [Concomitant]
     Dosage: UNK, UNKNOWN
     Route: 065
  4. AMIODARONE [Concomitant]
     Dosage: UNK, UNKNOWN
     Route: 065
  5. TEMERIT                            /01339101/ [Concomitant]
     Dosage: UNK, UNKNOWN
     Route: 065

REACTIONS (3)
  - ANAEMIA [None]
  - COLON NEOPLASM [None]
  - MENDELSON'S SYNDROME [None]
